FAERS Safety Report 9150748 (Version 4)
Quarter: 2013Q2

REPORT INFORMATION
  Report Type: Report from Study
  Country: FI (occurrence: FI)
  Receive Date: 20130308
  Receipt Date: 20130424
  Transmission Date: 20140414
  Serious: Yes (Hospitalization)
  Sender: FDA-Public Use
  Company Number: FI-ROCHE-1199321

PATIENT
  Age: 61 Year
  Sex: Female

DRUGS (3)
  1. PERTUZUMAB [Suspect]
     Indication: BREAST CANCER
     Dosage: LAST DOSE PRIOR TO SAE ON 14/FEB/2013
     Route: 042
     Dates: start: 20130214
  2. TRASTUZUMAB [Suspect]
     Indication: BREAST CANCER
     Dosage: LAST DOSE PRIRO TO SAE ON 15/FEB/2013
     Route: 042
     Dates: start: 20130215
  3. DOCETAXEL [Suspect]
     Indication: BREAST CANCER
     Dosage: LAST DOSE PRIRO TO SAE ON 15/FEB/2013
     Route: 042
     Dates: start: 20130215

REACTIONS (1)
  - Neutropenic infection [Recovered/Resolved]
